FAERS Safety Report 7364592-5 (Version None)
Quarter: 2011Q1

REPORT INFORMATION
  Report Type: 
  Country: None (occurrence: None)
  Receive Date: 20110321
  Receipt Date: 20110315
  Transmission Date: 20110831
  Serious: Yes (Hospitalization)
  Sender: FDA-Public Use
  Company Number: CHNY2011US00445

PATIENT
  Age: 22 Year
  Sex: Female

DRUGS (1)
  1. IBUPROFEN [Suspect]
     Indication: MENSTRUAL DISCOMFORT
     Dosage: 200 MG, UNK
     Route: 048

REACTIONS (14)
  - TRANSAMINASES INCREASED [None]
  - RASH [None]
  - ERYTHEMA [None]
  - HYPOTENSION [None]
  - LIP SWELLING [None]
  - PRURITUS [None]
  - PHOTOPHOBIA [None]
  - TOXIC EPIDERMAL NECROLYSIS [None]
  - VAGINAL ULCERATION [None]
  - SKIN BURNING SENSATION [None]
  - PAIN [None]
  - BLISTER [None]
  - VULVOVAGINAL DISCOMFORT [None]
  - VULVOVAGINAL ERYTHEMA [None]
